FAERS Safety Report 10462501 (Version 2)
Quarter: 2014Q3

REPORT INFORMATION
  Report Type: Spontaneous
  Country: RU (occurrence: RU)
  Receive Date: 20140918
  Receipt Date: 20140922
  Transmission Date: 20150326
  Serious: Yes (Death, Other)
  Sender: FDA-Public Use
  Company Number: PHHY2014RU119039

PATIENT
  Age: 63 Year
  Sex: Male

DRUGS (3)
  1. BROAD SPECTRUM ANTIBIOTICS [Concomitant]
  2. ISONIAZID. [Suspect]
     Active Substance: ISONIAZID
     Indication: PULMONARY TUBERCULOSIS
  3. RIFAMPICIN [Suspect]
     Active Substance: RIFAMPIN
     Indication: PULMONARY TUBERCULOSIS

REACTIONS (24)
  - Hydrothorax [Unknown]
  - Tuberculosis of intrathoracic lymph nodes [Unknown]
  - Meningoencephalitis bacterial [Unknown]
  - Hepatotoxicity [Fatal]
  - Stupor [Unknown]
  - Idiosyncratic drug reaction [Unknown]
  - Renal disorder [Unknown]
  - Blood creatinine increased [Unknown]
  - Ascites [Unknown]
  - Disseminated intravascular coagulation [Unknown]
  - Hyperbilirubinaemia [Fatal]
  - Hepatic necrosis [Fatal]
  - Hepatic atrophy [Fatal]
  - Thrombocytopenia [Unknown]
  - Drug-induced liver injury [Fatal]
  - Coma [Unknown]
  - Anaemia [Unknown]
  - Jaundice [Fatal]
  - Haemorrhage [Unknown]
  - Brain oedema [Unknown]
  - Pericardial effusion [Unknown]
  - Transaminases increased [Fatal]
  - Multi-organ failure [Unknown]
  - Blood urea increased [Unknown]
